FAERS Safety Report 4277014-8 (Version None)
Quarter: 2004Q1

REPORT INFORMATION
  Report Type: 
  Country: None (occurrence: None)
  Receive Date: 20040120
  Receipt Date: 20040120
  Transmission Date: 20041129
  Serious: Yes (Other)
  Sender: FDA-Public Use
  Company Number: None

PATIENT
  Sex: Female
  Weight: 65.7716 kg

DRUGS (4)
  1. ABILIFY [Suspect]
     Indication: AGITATION
     Dosage: 15 MG BID PO
     Route: 048
     Dates: start: 20031020, end: 20031023
  2. SEROQUEL [Concomitant]
  3. PAXIL [Concomitant]
  4. ORTHO TRICLYCLEN [Concomitant]

REACTIONS (3)
  - DYSARTHRIA [None]
  - DYSTONIA [None]
  - TONGUE DISORDER [None]
